FAERS Safety Report 5808984-1 (Version None)
Quarter: 2008Q3

REPORT INFORMATION
  Report Type: 
  Country: None (occurrence: None)
  Receive Date: 20080710
  Receipt Date: 20080710
  Transmission Date: 20090109
  Serious: Yes (Disabling, Other)
  Sender: FDA-Public Use
  Company Number: None

PATIENT
  Age: 58 Year
  Sex: Male
  Weight: 86.637 kg

DRUGS (2)
  1. LEVAQUIN [Suspect]
     Indication: SINUSITIS
     Dates: start: 20080610, end: 20080626
  2. CLINDAMYCIN HCL [Suspect]
     Indication: SINUSITIS
     Dates: start: 20080630, end: 20080709

REACTIONS (3)
  - MUSCLE SPASMS [None]
  - MYALGIA [None]
  - TENDON PAIN [None]
